FAERS Safety Report 6718963-8 (Version None)
Quarter: 2010Q2

REPORT INFORMATION
  Report Type: 
  Country: None (occurrence: None)
  Receive Date: 20100511
  Receipt Date: 20100423
  Transmission Date: 20101027
  Serious: Yes (Hospitalization, Other)
  Sender: FDA-Public Use
  Company Number: US-BAYER-201010050NA

PATIENT
  Age: 36 Year
  Sex: Female
  Weight: 53 kg

DRUGS (5)
  1. YASMIN [Suspect]
     Indication: CONTRACEPTION
     Route: 048
     Dates: start: 20050801, end: 20061202
  2. LEXAPRO [Concomitant]
     Indication: ANXIETY
     Dates: start: 20051101, end: 20100301
  3. WELLBUTRIN [Concomitant]
     Indication: ANXIETY
     Dates: start: 20020101, end: 20050101
  4. CLONAZEPAM [Concomitant]
     Indication: ANXIETY
     Dates: start: 20050101
  5. BENZACLIN [Concomitant]
     Indication: ACNE
     Dates: start: 19990101

REACTIONS (6)
  - COUGH [None]
  - DEEP VEIN THROMBOSIS [None]
  - MUSCULOSKELETAL PAIN [None]
  - PLEURAL EFFUSION [None]
  - PLEURITIC PAIN [None]
  - PULMONARY EMBOLISM [None]
